FAERS Safety Report 8762800 (Version 3)
Quarter: 2012Q4

REPORT INFORMATION
  Report Type: Report from Study
  Country: JP (occurrence: JP)
  Receive Date: 20120829
  Receipt Date: 20121108
  Transmission Date: 20130627
  Serious: Yes (Death, Life-Threatening, Hospitalization)
  Sender: FDA-Public Use
  Company Number: JP-PFIZER INC-2012209602

PATIENT
  Age: 82 Year
  Sex: Female

DRUGS (1)
  1. XALKORI [Suspect]
     Indication: NON-SMALL CELL LUNG CANCER
     Dosage: 500 mg, 1x/day
     Route: 048
     Dates: start: 20120810, end: 20120823

REACTIONS (3)
  - Interstitial lung disease [Not Recovered/Not Resolved]
  - Disease progression [Fatal]
  - Non-small cell lung cancer [Fatal]
